FAERS Safety Report 9820694 (Version 1)
Quarter: 2013Q4

REPORT INFORMATION
  Report Type: Spontaneous
  Country: US (occurrence: None)
  Receive Date: 20131028
  Receipt Date: 20131028
  Transmission Date: 20140711
  Serious: No
  Sender: FDA-Public Use
  Company Number: 2013US001045

PATIENT
  Age: 55 Year
  Sex: Female
  Weight: 98 kg

DRUGS (10)
  1. ICLUSIG [Suspect]
     Indication: CHRONIC MYELOID LEUKAEMIA
     Route: 048
     Dates: start: 20121220
  2. FOLIC ACID (FOLIC ACID) [Concomitant]
  3. INVEGA (PALIPERIDONE) [Concomitant]
  4. VALIUM (DIAZEPAM) [Concomitant]
  5. CYMBALTA (DULOXETINE HYDROCHLORIDE) [Concomitant]
  6. ACTIQ (FENTANYL CITRATE) [Concomitant]
  7. OXYCONTIN (OXYCODONE HYDROCHLORIDE) [Concomitant]
  8. MAG OXIDE (MAGNESIUM OXIDE) [Concomitant]
  9. METFORMIN (METFORMIN HYDROCHLORIDE) [Concomitant]
  10. VENTOLIN (SALBUTAMOL) [Concomitant]

REACTIONS (2)
  - Tendonitis [None]
  - Fatigue [None]
